APPROVED DRUG PRODUCT: DOXERCALCIFEROL
Active Ingredient: DOXERCALCIFEROL
Strength: 2.5MCG
Dosage Form/Route: CAPSULE;ORAL
Application: A205360 | Product #003 | TE Code: AB
Applicant: AVET PHARMACEUTICALS INC
Approved: Sep 15, 2020 | RLD: No | RS: Yes | Type: RX